FAERS Safety Report 18468804 (Version 1)
Quarter: 2020Q4

REPORT INFORMATION
  Report Type: Spontaneous
  Country: CA (occurrence: CA)
  Receive Date: 20201105
  Receipt Date: 20201105
  Transmission Date: 20210114
  Serious: Yes (Hospitalization)
  Sender: FDA-Public Use
  Company Number: CA-JNJFOC-20201051035

PATIENT
  Age: 61 Year
  Sex: Male
  Weight: 79 kg

DRUGS (7)
  1. INFLIXIMAB, RECOMBINANT [Suspect]
     Active Substance: INFLIXIMAB
     Indication: CROHN^S DISEASE
     Route: 042
  2. PURINETHOL [Concomitant]
     Active Substance: MERCAPTOPURINE
     Route: 048
  3. TYLENOL [Concomitant]
     Active Substance: ACETAMINOPHEN
     Route: 048
  4. SALOFALK                           /00000301/ [Concomitant]
     Active Substance: AMINOSALICYLIC ACID
     Route: 054
  5. K-DUR [Concomitant]
     Active Substance: POTASSIUM CHLORIDE
     Route: 065
  6. CALCIUM                            /00060701/ [Concomitant]
     Active Substance: CALCIUM
     Route: 048
  7. PREDNISONE. [Concomitant]
     Active Substance: PREDNISONE
     Route: 048

REACTIONS (3)
  - Gastrointestinal disorder [Unknown]
  - Off label use [Unknown]
  - Drug ineffective [Unknown]
